FAERS Safety Report 17389325 (Version 4)
Quarter: 2025Q2

REPORT INFORMATION
  Report Type: Spontaneous
  Country: PT (occurrence: PT)
  Receive Date: 20200207
  Receipt Date: 20250614
  Transmission Date: 20250717
  Serious: Yes (Other)
  Sender: AUROBINDO
  Company Number: PT-AMGEN-PRTSP2020010834

PATIENT
  Age: 88 Year
  Sex: Female

DRUGS (2)
  1. CINACALCET [Suspect]
     Active Substance: CINACALCET
     Indication: Hypercalcaemia
     Dosage: 30 MILLIGRAM, ONCE A DAY
     Route: 065
  2. XGEVA [Suspect]
     Active Substance: DENOSUMAB
     Indication: Hypercalcaemia
     Route: 058

REACTIONS (4)
  - Hypercalcaemia [Recovered/Resolved]
  - Condition aggravated [Unknown]
  - Renal function test abnormal [Unknown]
  - Drug ineffective [Unknown]
